FAERS Safety Report 22659807 (Version 1)
Quarter: 2023Q2

REPORT INFORMATION
  Report Type: Spontaneous
  Country: US (occurrence: US)
  Receive Date: 20230630
  Receipt Date: 20230630
  Transmission Date: 20230722
  Serious: Yes (Other)
  Sender: FDA-Public Use
  Company Number: US-PFIZER INC-PV202300114454

PATIENT
  Age: 70 Year
  Sex: Female

DRUGS (2)
  1. IBRANCE [Suspect]
     Active Substance: PALBOCICLIB
     Indication: Malignant nipple neoplasm
     Dosage: 100 MG, CYCLIC (ONCE DAILY, 21 DAYS ON AND 7 DAYS OFF)
     Route: 048
     Dates: start: 20230613
  2. NORVASC [Concomitant]
     Active Substance: AMLODIPINE BESYLATE
     Dosage: 7 MG, 1X/DAY (2.5 MG TABLET + 5 MG TABLET)
     Route: 048
     Dates: start: 20230413

REACTIONS (2)
  - Thrombocytopenia [Unknown]
  - Iron deficiency anaemia [Unknown]
